FAERS Safety Report 7752781-7 (Version None)
Quarter: 2011Q3

REPORT INFORMATION
  Report Type: 
  Country: None (occurrence: None)
  Receive Date: 20110915
  Receipt Date: 20110908
  Transmission Date: 20111222
  Serious: Yes (Other)
  Sender: FDA-Public Use
  Company Number: DE-ROCHE-802107

PATIENT
  Sex: Male

DRUGS (1)
  1. VALIUM [Suspect]
     Dosage: FREQUENCY: PRN, HALF TABLET
     Route: 065

REACTIONS (1)
  - ROAD TRAFFIC ACCIDENT [None]
